FAERS Safety Report 9531090 (Version 1)
Quarter: 2013Q3

REPORT INFORMATION
  Report Type: Spontaneous
  Country: US (occurrence: US)
  Receive Date: 20130918
  Receipt Date: 20130918
  Transmission Date: 20140515
  Serious: Yes (Hospitalization, Other)
  Sender: FDA-Public Use
  Company Number: US-BAYER-2013-112534

PATIENT
  Age: 31 Year
  Sex: Female

DRUGS (4)
  1. YASMIN [Suspect]
  2. CLINDAMYCIN [Concomitant]
     Dosage: UNK
     Dates: start: 20070716
  3. HYDROCODONE W/APAP [Concomitant]
     Dosage: UNK
     Dates: start: 20070716
  4. CHLORHEXIDINE [Concomitant]
     Dosage: UNK
     Dates: start: 20070716

REACTIONS (2)
  - Deep vein thrombosis [Recovered/Resolved]
  - Pulmonary embolism [Recovered/Resolved]
